FAERS Safety Report 16752306 (Version 1)
Quarter: 2019Q3

REPORT INFORMATION
  Report Type: Spontaneous
  Country: FR (occurrence: FR)
  Receive Date: 20190828
  Receipt Date: 20190828
  Transmission Date: 20191005
  Serious: Yes (Other)
  Sender: FDA-Public Use
  Company Number: FR-MYLANLABS-2019M1080147

PATIENT
  Age: 19 Year
  Sex: Male

DRUGS (1)
  1. MYLAN-LAMOTRIGINE [Suspect]
     Active Substance: LAMOTRIGINE
     Indication: EPILEPSY
     Dosage: 2 DOSAGE FORM
     Route: 048
     Dates: start: 201903, end: 201904

REACTIONS (1)
  - Epilepsy [Recovered/Resolved]

NARRATIVE: CASE EVENT DATE: 201903
